APPROVED DRUG PRODUCT: DESFERAL
Active Ingredient: DEFEROXAMINE MESYLATE
Strength: 500MG/VIAL
Dosage Form/Route: INJECTABLE;INJECTION
Application: N016267 | Product #001 | TE Code: AP
Applicant: MITEM PHARMA INC
Approved: Approved Prior to Jan 1, 1982 | RLD: Yes | RS: Yes | Type: RX